FAERS Safety Report 8545162-X (Version None)
Quarter: 2012Q3

REPORT INFORMATION
  Report Type: 
  Country: None (occurrence: None)
  Receive Date: 20120727
  Receipt Date: 20120717
  Transmission Date: 20120928
  Serious: Yes (Other)
  Sender: FDA-Public Use
  Company Number: IE-ELI_LILLY_AND_COMPANY-IE201207005382

PATIENT
  Age: 64 Year
  Sex: Male

DRUGS (3)
  1. HUMULIN 70/30 [Concomitant]
     Dosage: 22 U, EACH EVENING
  2. HUMALOG [Suspect]
     Dosage: UNK, UNKNOWN
  3. HUMULIN 70/30 [Concomitant]
     Indication: DIABETES MELLITUS
     Dosage: 44 U, EACH MORNING

REACTIONS (2)
  - DIABETES MELLITUS [None]
  - DRUG DISPENSING ERROR [None]
